FAERS Safety Report 8432667-5 (Version None)
Quarter: 2012Q2

REPORT INFORMATION
  Report Type: 
  Country: None (occurrence: None)
  Receive Date: 20120607
  Receipt Date: 20120530
  Transmission Date: 20120825
  Serious: Yes (Life-Threatening, Hospitalization, Other)
  Sender: FDA-Public Use
  Company Number: TPA2012A03103

PATIENT
  Age: 70 Year
  Sex: Male

DRUGS (4)
  1. UNKNOWN DIABETES MEDICATION (DRUG USED IN DIABETES) [Concomitant]
  2. UNKNOWN BLOOD PRESSURE MEDICATION (ANTIHYPERTENSIVES) [Concomitant]
  3. DEXAMETHASONE [Concomitant]
  4. ULORIC [Suspect]
     Indication: GOUT
     Dosage: 40 MG,  1 IN 1 D, PER ORAL
     Route: 048

REACTIONS (1)
  - STEVENS-JOHNSON SYNDROME [None]
